FAERS Safety Report 6646166-4 (Version None)
Quarter: 2010Q1

REPORT INFORMATION
  Report Type: 
  Country: None (occurrence: None)
  Receive Date: 20100323
  Receipt Date: 20100312
  Transmission Date: 20100710
  Serious: Yes (Hospitalization)
  Sender: FDA-Public Use
  Company Number: JP-ROCHE-637870

PATIENT
  Sex: Female

DRUGS (17)
  1. TOCILIZUMAB [Suspect]
     Indication: RHEUMATOID ARTHRITIS
     Route: 041
     Dates: start: 20090427, end: 20090427
  2. RHEUMATREX [Concomitant]
     Route: 048
  3. PREDNISOLONE [Concomitant]
     Dosage: FORM: ORAL FORMULATION (NOT OTHERWISE SPECIFIED).
     Route: 048
  4. GASMOTIN [Concomitant]
     Dosage: FORM: ORAL FORMULATION (NOT OTHERWISE SPECIFIED).
     Route: 048
     Dates: end: 20090501
  5. GLIMICRON [Concomitant]
     Route: 048
     Dates: end: 20090501
  6. LORCAM [Concomitant]
     Route: 048
  7. MUCOSTA [Concomitant]
     Dosage: FORM: ORAL FORMULATION (NOT OTHERWISE SPECIFIED).
     Route: 048
  8. PARIET [Concomitant]
     Route: 048
  9. ALFAROL [Concomitant]
     Route: 048
  10. ALDACTONE [Concomitant]
     Dosage: FORM: ORAL FORMULATION (NOT OTHERWISE SPECIFIED).
     Route: 048
     Dates: end: 20090501
  11. GLYSENNID [Concomitant]
     Route: 048
  12. LASIX [Concomitant]
     Dosage: FORM: ORAL FORMULATION (NOT OTHERWISE SPECIFIED).
     Route: 048
     Dates: end: 20090501
  13. ALENDRONATE SODIUM [Concomitant]
     Route: 048
     Dates: end: 20090501
  14. TANDOSPIRONE CITRATE [Concomitant]
     Dosage: DRUG REPORTED AS: SEDIEL.
     Route: 048
     Dates: end: 20090501
  15. PRIMPERAN INJ [Concomitant]
     Dosage: FORM: ORAL FORMULATION (NOT OTHERWISE SPECIFIED).
     Route: 048
  16. WARFARIN SODIUM [Concomitant]
     Route: 048
  17. TIZANIDINE HCL [Concomitant]
     Dosage: DRUG: TERNELIN(TIZANIDINE HYDROCHLORIDE). FORM: ORAL FORMULATION (NOT OTHERWISE SPECIFIED).
     Route: 048
     Dates: end: 20090501

REACTIONS (6)
  - LYMPHOCYTE COUNT DECREASED [None]
  - PANCREATITIS ACUTE [None]
  - PLATELET COUNT DECREASED [None]
  - PYREXIA [None]
  - RENAL IMPAIRMENT [None]
  - WHITE BLOOD CELL COUNT INCREASED [None]
